FAERS Safety Report 21908180 (Version 1)
Quarter: 2023Q1

REPORT INFORMATION
  Report Type: Spontaneous
  Country: CZ (occurrence: CZ)
  Receive Date: 20230125
  Receipt Date: 20230125
  Transmission Date: 20230418
  Serious: Yes (Other)
  Sender: FDA-Public Use
  Company Number: CZ-002147023-NVSC2022CZ286669

PATIENT
  Age: 51 Year
  Sex: Female

DRUGS (2)
  1. CISPLATIN [Suspect]
     Active Substance: CISPLATIN
     Indication: Adenocarcinoma
     Dosage: UNK
     Route: 065
     Dates: start: 201604
  2. PEMETREXED [Suspect]
     Active Substance: PEMETREXED
     Indication: Adenocarcinoma
     Dosage: UNK
     Route: 065
     Dates: start: 201604

REACTIONS (4)
  - Non-small cell lung cancer [Unknown]
  - Pulmonary mass [Unknown]
  - Metastases to liver [Unknown]
  - Gastrointestinal toxicity [Unknown]
